FAERS Safety Report 6991670-2 (Version None)
Quarter: 2010Q3

REPORT INFORMATION
  Report Type: 
  Country: None (occurrence: None)
  Receive Date: 20100914
  Receipt Date: 20100914
  Transmission Date: 20110219
  Serious: Yes (Hospitalization)
  Sender: FDA-Public Use
  Company Number: None

PATIENT
  Age: 65 Year
  Sex: Female
  Weight: 49.8957 kg

DRUGS (4)
  1. ESSENTIAL NUTRIENTS (134 IU VITAMIN E PER PACKET) [Suspect]
     Indication: GENERAL PHYSICAL CONDITION ABNORMAL
     Dosage: 1 PACKET ORAL TWICE DAY
     Route: 048
     Dates: start: 20100508, end: 20100626
  2. ESSENTIAL NUTRIENTS (134 IU VITAMIN E PER PACKET) [Suspect]
     Indication: NUTRITIONAL CONDITION ABNORMAL
     Dosage: 1 PACKET ORAL TWICE DAY
     Route: 048
     Dates: start: 20100508, end: 20100626
  3. NASOGEL [Concomitant]
  4. HERBAL EQUILIBRIUM [Concomitant]

REACTIONS (3)
  - ANGIOPATHY [None]
  - EPISTAXIS [None]
  - SYNCOPE [None]
